FAERS Safety Report 9482606 (Version 1)
Quarter: 2013Q3

REPORT INFORMATION
  Report Type: Spontaneous
  Country: CO (occurrence: CO)
  Receive Date: 20130828
  Receipt Date: 20130828
  Transmission Date: 20140515
  Serious: Yes (Hospitalization, Other)
  Sender: FDA-Public Use
  Company Number: CO-AMGEN-COLSP2013060111

PATIENT
  Age: 82 Year
  Sex: Male

DRUGS (2)
  1. ENBREL [Suspect]
     Indication: RHEUMATOID ARTHRITIS
     Dosage: 50 MG, WEEKLY
     Route: 058
     Dates: start: 201303, end: 201306
  2. METOPROLOL [Concomitant]
     Indication: HYPERTENSION
     Dosage: 120 MG, 2X/DAY
     Route: 048
     Dates: start: 2001

REACTIONS (3)
  - Cataract [Recovering/Resolving]
  - Influenza [Recovered/Resolved]
  - Pneumonia [Recovered/Resolved]
